FAERS Safety Report 6066331-7 (Version None)
Quarter: 2009Q1

REPORT INFORMATION
  Report Type: 
  Country: None (occurrence: None)
  Receive Date: 20090205
  Receipt Date: 20090130
  Transmission Date: 20090719
  Serious: No
  Sender: FDA-Public Use
  Company Number: US-BAYER-200912204NA

PATIENT
  Age: 41 Year
  Sex: Female
  Weight: 75 kg

DRUGS (2)
  1. MIRENA [Suspect]
     Indication: CONTRACEPTION
     Route: 015
     Dates: start: 20090119, end: 20090130
  2. DARVOCET [Concomitant]

REACTIONS (3)
  - ABDOMINAL PAIN LOWER [None]
  - BACK PAIN [None]
  - IUCD COMPLICATION [None]
